FAERS Safety Report 6451572-7 (Version None)
Quarter: 2009Q4

REPORT INFORMATION
  Report Type: 
  Country: None (occurrence: None)
  Receive Date: 20091123
  Receipt Date: 20091112
  Transmission Date: 20100525
  Serious: Yes (Disabling, Other)
  Sender: FDA-Public Use
  Company Number: DK-JNJFOC-20090907066

PATIENT
  Sex: Female

DRUGS (7)
  1. REMICADE [Suspect]
     Route: 042
     Dates: start: 20060614, end: 20090605
  2. REMICADE [Suspect]
     Indication: RHEUMATOID ARTHRITIS
     Dosage: WEEK 0, 2, 6, 8
     Route: 042
     Dates: start: 20060614, end: 20090605
  3. ACTEMRA [Suspect]
     Route: 042
     Dates: start: 20090609, end: 20090906
  4. ACTEMRA [Suspect]
     Route: 042
     Dates: start: 20090609, end: 20090906
  5. ACTEMRA [Suspect]
     Indication: RHEUMATOID ARTHRITIS
     Route: 042
     Dates: start: 20090609, end: 20090906
  6. SALAZOPYRIN [Concomitant]
  7. ALL OTHER THERAPEUTIC PRODUCTS [Concomitant]
     Indication: ARTHRITIS

REACTIONS (1)
  - BREAST CANCER [None]
